FAERS Safety Report 5917592-3 (Version None)
Quarter: 2008Q4

REPORT INFORMATION
  Report Type: 
  Country: None (occurrence: None)
  Receive Date: 20081010
  Receipt Date: 20081010
  Transmission Date: 20090506
  Serious: Yes (Hospitalization)
  Sender: FDA-Public Use
  Company Number: None

PATIENT
  Sex: Female
  Weight: 77 kg

DRUGS (1)
  1. TAXOL [Suspect]
     Dosage: 236 MG
     Dates: start: 20080902

REACTIONS (2)
  - NEUTROPHIL COUNT DECREASED [None]
  - UPPER RESPIRATORY TRACT INFECTION [None]
